FAERS Safety Report 7007572-1 (Version None)
Quarter: 2010Q3

REPORT INFORMATION
  Report Type: 
  Country: None (occurrence: None)
  Receive Date: 20100916
  Receipt Date: 20100907
  Transmission Date: 20110219
  Serious: Yes (Life-Threatening, Other)
  Sender: FDA-Public Use
  Company Number: 2010SP046811

PATIENT
  Age: 25 Year
  Sex: Male
  Weight: 71 kg

DRUGS (10)
  1. VERCURONIUM BROMIDE (VECURONIUM BROMIDE /00600002/) [Suspect]
     Indication: ANAESTHESIA PROCEDURE
     Dosage: 4 MG;ONCE
  2. ATROPINE [Suspect]
     Indication: ANAESTHESIA PROCEDURE
     Dosage: 0.5 MG;ONCE; 0.5 MG;ONCE
  3. MIDAZOLAM (OTHER MFR) (MIDAZOLAM /00634101/) [Suspect]
     Indication: ANAESTHESIA PROCEDURE
     Dosage: 2 MG;ONCE
  4. FENTANYL CITRATE [Suspect]
     Indication: ANAESTHESIA PROCEDURE
     Dosage: 0.2 MG ONCE;
  5. THIOPENTAL SODIUM [Suspect]
     Indication: ANAESTHESIA PROCEDURE
     Dosage: 250 MG;ONCE
  6. SUXAMETONIUM (SUXAMETHONIUM) [Suspect]
     Indication: ANAESTHESIA PROCEDURE
     Dosage: 90 MG; ONCE
  7. NEOSTYGMINUM (NEOSTIGMINE) [Suspect]
     Indication: ANAESTHESIA PROCEDURE
     Dosage: 0.5 MG; ONCE
  8. NITROUS OXIDE [Concomitant]
  9. OXYGEN [Concomitant]
  10. ISOFLURANE [Concomitant]

REACTIONS (11)
  - ACUTE PULMONARY OEDEMA [None]
  - ACUTE RESPIRATORY FAILURE [None]
  - ASPIRATION [None]
  - BLOOD PRESSURE DIASTOLIC DECREASED [None]
  - BRADYCARDIA [None]
  - BRONCHIAL HAEMORRHAGE [None]
  - CIRCULATORY COLLAPSE [None]
  - CYANOSIS [None]
  - PULMONARY HAEMORRHAGE [None]
  - RESPIRATORY FAILURE [None]
  - WHEEZING [None]
